FAERS Safety Report 6797095 (Version 6)
Quarter: 2014Q3

REPORT INFORMATION
  Report Type: Report from Study
  Country: DE (occurrence: DE)
  Receive Date: 20081027
  Receipt Date: 20140723
  Transmission Date: 20150326
  Serious: Yes (Death, Hospitalization)
  Sender: FDA-Public Use
  Company Number: PHHO2008DE12119

PATIENT

DRUGS (9)
  1. MERONEM [Suspect]
     Active Substance: MEROPENEM
  2. CASPOFUNGIN [Suspect]
     Active Substance: CASPOFUNGIN
  3. NO TREATMENT RECEIVED [Suspect]
     Active Substance: UNSPECIFIED INGREDIENT
     Indication: RENAL TRANSPLANT
     Dosage: UNK
  4. DECORTIN [Concomitant]
     Active Substance: PREDNISONE
     Indication: RENAL TRANSPLANT
     Dosage: UNK
     Route: 048
     Dates: start: 20080327, end: 20080626
  5. TACROLIMUS. [Concomitant]
     Active Substance: TACROLIMUS
     Indication: RENAL TRANSPLANT
     Dosage: UNK
     Dates: start: 20080709
  6. SANDIMMUN OPTORAL [Suspect]
     Active Substance: CYCLOSPORINE
     Indication: RENAL TRANSPLANT
  7. RIFAMPICIN [Suspect]
     Active Substance: RIFAMPIN
  8. CARBIMAZOLE [Suspect]
     Active Substance: CARBIMAZOLE
  9. ISONIAZID. [Suspect]
     Active Substance: ISONIAZID

REACTIONS (7)
  - Cholangitis [Fatal]
  - Pneumonia [Fatal]
  - Sepsis [Fatal]
  - Hepatic failure [Fatal]
  - Vanishing bile duct syndrome [Fatal]
  - Gastrointestinal haemorrhage [Fatal]
  - Cholestasis [Fatal]

NARRATIVE: CASE EVENT DATE: 20080704
